FAERS Safety Report 16752099 (Version 1)
Quarter: 2019Q3

REPORT INFORMATION
  Report Type: Spontaneous
  Country: US (occurrence: US)
  Receive Date: 20190828
  Receipt Date: 20190828
  Transmission Date: 20191005
  Serious: No
  Sender: FDA-Public Use
  Company Number: US-009507513-1908USA010236

PATIENT
  Age: 77 Year
  Sex: Male

DRUGS (3)
  1. NITROFURANTOIN. [Concomitant]
     Active Substance: NITROFURANTOIN
     Indication: BACTERIAL PYELONEPHRITIS
     Dosage: 5 DAYS
     Dates: start: 201612
  2. CEFEPIME [Concomitant]
     Active Substance: CEFEPIME HYDROCHLORIDE
     Indication: BACTERIAL PYELONEPHRITIS
     Dosage: 2 DAYS
     Dates: start: 201612
  3. INVANZ [Suspect]
     Active Substance: ERTAPENEM SODIUM
     Indication: BACTERIAL PYELONEPHRITIS
     Dosage: 2 DAYS
     Dates: start: 201612

REACTIONS (1)
  - Incorrect product administration duration [Unknown]

NARRATIVE: CASE EVENT DATE: 201612
